FAERS Safety Report 16045740 (Version 1)
Quarter: 2019Q2

REPORT INFORMATION
  Report Type: Spontaneous
  Country: US (occurrence: US)
  Receive Date: 20190306
  Receipt Date: 20190306
  Transmission Date: 20190711
  Serious: No
  Sender: FDA-Public Use
  Company Number: None

PATIENT
  Age: 85 Year
  Sex: Female
  Weight: 76.5 kg

DRUGS (1)
  1. TRIAVIL [Suspect]
     Active Substance: AMITRIPTYLINE HYDROCHLORIDE\PERPHENAZINE
     Indication: DIVORCED
     Dates: start: 19850505, end: 19850505

REACTIONS (3)
  - Depression [None]
  - Dyspnoea [None]
  - Suicidal ideation [None]

NARRATIVE: CASE EVENT DATE: 19850505
